FAERS Safety Report 18981861 (Version 2)
Quarter: 2024Q1

REPORT INFORMATION
  Report Type: Spontaneous
  Country: CA (occurrence: None)
  Receive Date: 20210308
  Receipt Date: 20240322
  Transmission Date: 20240409
  Serious: Yes (Hospitalization)
  Sender: FDA-Public Use
  Company Number: 2021A096305

PATIENT
  Age: 16 Year
  Sex: Male

DRUGS (34)
  1. QUETIAPINE [Suspect]
     Active Substance: QUETIAPINE
     Indication: Sedation
     Dosage: 200 MILLIGRAM, AT BED TIME
     Route: 048
  2. QUETIAPINE [Suspect]
     Active Substance: QUETIAPINE
     Indication: Autism spectrum disorder
     Dosage: 200 MILLIGRAM, AT BED TIME
     Route: 048
  3. CHLORPROMAZINE [Suspect]
     Active Substance: CHLORPROMAZINE
     Indication: Autism spectrum disorder
     Dosage: 200 MILLIGRAM. AT NOON, EVERY DAY
     Route: 065
  4. CHLORPROMAZINE [Suspect]
     Active Substance: CHLORPROMAZINE
     Indication: Sedation
     Dosage: 200 MILLIGRAM. AT NOON, EVERY DAY
     Route: 065
  5. CHLORPROMAZINE [Suspect]
     Active Substance: CHLORPROMAZINE
     Indication: Autism spectrum disorder
     Dosage: 200.0MG UNKNOWN
     Route: 065
  6. CHLORPROMAZINE [Suspect]
     Active Substance: CHLORPROMAZINE
     Indication: Sedation
     Dosage: 200.0MG UNKNOWN
     Route: 065
  7. CHLORPROMAZINE [Suspect]
     Active Substance: CHLORPROMAZINE
     Indication: Autism spectrum disorder
     Dosage: 100.0MG UNKNOWN
     Route: 065
  8. CHLORPROMAZINE [Suspect]
     Active Substance: CHLORPROMAZINE
     Indication: Sedation
     Dosage: 100.0MG UNKNOWN
     Route: 065
  9. RISPERIDONE [Suspect]
     Active Substance: RISPERIDONE
     Indication: Autism spectrum disorder
     Dosage: 1 MILLIGRAM
     Route: 065
  10. RISPERIDONE [Suspect]
     Active Substance: RISPERIDONE
     Indication: Autism spectrum disorder
     Dosage: UNK1.0MG UNKNOWN
     Route: 065
  11. CLONAZEPAM [Suspect]
     Active Substance: CLONAZEPAM
     Indication: Autism spectrum disorder
     Dosage: 2 MILLIGRAM, AT BED TIME
     Route: 065
  12. CLONAZEPAM [Suspect]
     Active Substance: CLONAZEPAM
     Indication: Autism spectrum disorder
     Dosage: 2 MILLIGRAM, AT BED TIME2.0MG UNKNOWN
  13. HALOPERIDOL DECANOATE [Suspect]
     Active Substance: HALOPERIDOL DECANOATE
     Indication: Sedation
     Dosage: UNK (SEVERAL DOSES)
     Route: 030
  14. HALOPERIDOL DECANOATE [Suspect]
     Active Substance: HALOPERIDOL DECANOATE
     Indication: Autism spectrum disorder
     Dosage: UNK (SEVERAL DOSES)
     Route: 030
  15. MIDAZOLAM [Concomitant]
     Active Substance: MIDAZOLAM
     Indication: Sedation
  16. MIDAZOLAM [Concomitant]
     Active Substance: MIDAZOLAM
     Indication: Sedation
  17. MIDAZOLAM [Concomitant]
     Active Substance: MIDAZOLAM
     Indication: General anaesthesia
  18. MIDAZOLAM [Concomitant]
     Active Substance: MIDAZOLAM
     Indication: General anaesthesia
  19. LORAZEPAM [Concomitant]
     Active Substance: LORAZEPAM
     Indication: Product used for unknown indication
     Route: 065
  20. LORAZEPAM [Concomitant]
     Active Substance: LORAZEPAM
     Indication: Product used for unknown indication
     Route: 065
  21. LORAZEPAM [Concomitant]
     Active Substance: LORAZEPAM
     Indication: Product used for unknown indication
     Route: 065
  22. LORAZEPAM [Concomitant]
     Active Substance: LORAZEPAM
     Indication: Product used for unknown indication
     Route: 065
  23. LORAZEPAM [Concomitant]
     Active Substance: LORAZEPAM
     Indication: Product used for unknown indication
     Dosage: UNK, DOSE GRADUALLY INCREASED OVER THE YEAR
     Route: 065
  24. KETAMINE [Concomitant]
     Active Substance: KETAMINE
     Indication: General anaesthesia
     Route: 030
  25. KETAMINE [Concomitant]
     Active Substance: KETAMINE
     Indication: General anaesthesia
     Dosage: UNK
     Route: 048
  26. FLUVOXAMINE [Concomitant]
     Active Substance: FLUVOXAMINE
     Indication: Product used for unknown indication
     Dosage: 150 MILLIGRAM PER DAY
     Route: 065
  27. ACETAMINOPHEN [Concomitant]
     Active Substance: ACETAMINOPHEN
     Indication: Product used for unknown indication
     Dosage: UNK
  28. MELATONIN [Concomitant]
     Active Substance: MELATONIN
     Indication: Insomnia
     Dosage: 10 MILLIGRAM, AT BED TIME
  29. MIDAZOLAM [Concomitant]
     Active Substance: MIDAZOLAM
     Indication: Sedation
     Dosage: UNK (SEVERAL DOSES)
     Route: 030
  30. MIDAZOLAM [Concomitant]
     Active Substance: MIDAZOLAM
     Indication: General anaesthesia
     Dosage: UNK (SEVERAL DOSES)
     Route: 030
  31. MIDAZOLAM [Concomitant]
     Active Substance: MIDAZOLAM
     Indication: Sedation
     Route: 048
  32. MIDAZOLAM [Concomitant]
     Active Substance: MIDAZOLAM
     Indication: General anaesthesia
     Route: 048
  33. SERTRALINE [Concomitant]
     Active Substance: SERTRALINE HYDROCHLORIDE
     Indication: Product used for unknown indication
     Dosage: 50 MILLIGRAM, EVERY MORNING50.0MG UNKNOWN
     Route: 065
  34. SERTRALINE [Concomitant]
     Active Substance: SERTRALINE HYDROCHLORIDE
     Indication: Product used for unknown indication
     Dosage: 100.0MG UNKNOWN
     Route: 065

REACTIONS (2)
  - Blood prolactin increased [Unknown]
  - Off label use [Unknown]
